FAERS Safety Report 18599908 (Version 2)
Quarter: 2021Q1

REPORT INFORMATION
  Report Type: Spontaneous
  Country: DE (occurrence: DE)
  Receive Date: 20201210
  Receipt Date: 20210111
  Transmission Date: 20210419
  Serious: Yes (Other)
  Sender: FDA-Public Use
  Company Number: DE-PFIZER INC-05H-062-0286533-00

PATIENT
  Age: 16 Year
  Sex: Male

DRUGS (1)
  1. HEPARIN SODIUM. [Suspect]
     Active Substance: HEPARIN SODIUM
     Indication: CEREBRAL INFARCTION
     Dosage: UNK

REACTIONS (3)
  - Heparin-induced thrombocytopenia [Recovered/Resolved]
  - Sepsis [Recovered/Resolved]
  - Phlebitis [Recovered/Resolved]
